FAERS Safety Report 7732320-7 (Version None)
Quarter: 2011Q3

REPORT INFORMATION
  Report Type: 
  Country: None (occurrence: None)
  Receive Date: 20110906
  Receipt Date: 20110822
  Transmission Date: 20111222
  Serious: Yes (Hospitalization)
  Sender: FDA-Public Use
  Company Number: JP-WATSON-2011-13992

PATIENT
  Age: 70 Year
  Sex: Female

DRUGS (2)
  1. MIZORIBINE [Suspect]
     Indication: COLLAGEN-VASCULAR DISEASE
     Dosage: 150 MG, DAILY
  2. PREDNISOLONE [Suspect]
     Indication: COLLAGEN-VASCULAR DISEASE
     Dosage: 17.5 MG, DAILY

REACTIONS (4)
  - RENAL DISORDER [None]
  - ENDOCARDITIS [None]
  - VASCULITIS [None]
  - CARDIAC FAILURE [None]
